FAERS Safety Report 14233492 (Version 3)
Quarter: 2017Q4

REPORT INFORMATION
  Report Type: Spontaneous
  Country: CA (occurrence: CA)
  Receive Date: 20171129
  Receipt Date: 20171221
  Transmission Date: 20180321
  Serious: Yes (Other)
  Sender: FDA-Public Use
  Company Number: CA-REGENERON PHARMACEUTICALS, INC.-2017-24703

PATIENT

DRUGS (7)
  1. EYLEA [Suspect]
     Active Substance: AFLIBERCEPT
     Dosage: LAST DOSE PRIOR TO THE EVENT
     Dates: start: 20171011, end: 20171011
  2. EYLEA [Suspect]
     Active Substance: AFLIBERCEPT
     Dosage: UNK
  3. EYLEA [Suspect]
     Active Substance: AFLIBERCEPT
     Dosage: EYLEA LOT USED IN THE PRE-FILLED SYRINGE
  4. EYLEA [Suspect]
     Active Substance: AFLIBERCEPT
     Indication: AGE-RELATED MACULAR DEGENERATION
     Dosage: UNK
     Dates: start: 20140721, end: 20170125
  5. EYLEA [Suspect]
     Active Substance: AFLIBERCEPT
     Dosage: PRE-FILLED SYRINGE
     Dates: start: 20171021
  6. CALCIUM VIT D [Concomitant]
     Active Substance: CALCIUM\CHOLECALCIFEROL
     Indication: PRODUCT USED FOR UNKNOWN INDICATION
  7. EYLEA [Suspect]
     Active Substance: AFLIBERCEPT
     Dosage: UNK

REACTIONS (3)
  - Blindness [Unknown]
  - Inadequate aseptic technique in use of product [Unknown]
  - Endophthalmitis [Recovered/Resolved]

NARRATIVE: CASE EVENT DATE: 201710
